FAERS Safety Report 8244727-2 (Version None)
Quarter: 2012Q1

REPORT INFORMATION
  Report Type: 
  Country: None (occurrence: None)
  Receive Date: 20120329
  Receipt Date: 20110228
  Transmission Date: 20120608
  Serious: No
  Sender: FDA-Public Use
  Company Number: US-MYLANLABS-2011S1003888

PATIENT
  Age: 61 Year
  Sex: Male
  Weight: 83.46 kg

DRUGS (7)
  1. AMLODIPINE [Concomitant]
     Indication: BLOOD PRESSURE
  2. HYZAAR [Concomitant]
     Indication: BLOOD PRESSURE
  3. CALCIUM CARBONATE [Concomitant]
  4. ASPIRIN [Concomitant]
     Indication: CARDIOVASCULAR EVENT PROPHYLAXIS
  5. VITAMIN TAB [Concomitant]
  6. FENTANYL-100 [Suspect]
     Indication: BACK PAIN
     Dosage: Q 72 HOURS
     Route: 062
     Dates: start: 20110222
  7. LISINOPRIL [Concomitant]
     Indication: BLOOD PRESSURE

REACTIONS (3)
  - VOMITING [None]
  - CHILLS [None]
  - BLOOD PRESSURE INCREASED [None]
